FAERS Safety Report 26111955 (Version 1)
Quarter: 2025Q4

REPORT INFORMATION
  Report Type: Spontaneous
  Country: RU (occurrence: RU)
  Receive Date: 20251202
  Receipt Date: 20251202
  Transmission Date: 20260118
  Serious: Yes (Death, Life-Threatening, Hospitalization)
  Sender: SANDOZ
  Company Number: RU-GSK-RU2025GSK119554

PATIENT
  Age: 16 Year
  Sex: Female

DRUGS (2)
  1. LAMOTRIGINE [Suspect]
     Active Substance: LAMOTRIGINE
     Indication: Idiopathic generalised epilepsy
     Dosage: UNK
     Route: 065
  2. ACETAMINOPHEN\IBUPROFEN [Suspect]
     Active Substance: ACETAMINOPHEN\IBUPROFEN
     Indication: Pyrexia
     Dosage: UNK
     Route: 065

REACTIONS (13)
  - Stevens-Johnson syndrome [Fatal]
  - Obliterative bronchiolitis [Fatal]
  - Chronic respiratory failure [Fatal]
  - Keratitis [Fatal]
  - Pneumonia [Fatal]
  - Cardiac failure [Fatal]
  - Acute kidney injury [Fatal]
  - Brain oedema [Fatal]
  - Ulcerative keratitis [Fatal]
  - Corneal perforation [Fatal]
  - Pneumothorax [Fatal]
  - Pneumomediastinum [Recovered/Resolved]
  - Sinusitis [Unknown]
